FAERS Safety Report 8011735-6 (Version None)
Quarter: 2011Q4

REPORT INFORMATION
  Report Type: 
  Country: None (occurrence: None)
  Receive Date: 20111228
  Receipt Date: 20111223
  Transmission Date: 20120403
  Serious: No
  Sender: FDA-Public Use
  Company Number: US-BAYER-2011-123732

PATIENT
  Age: 53 Year
  Sex: Female
  Weight: 79.365 kg

DRUGS (2)
  1. BENADRYL [Concomitant]
     Dosage: 2 U, UNK
     Route: 048
  2. NAPROXEN (ALEVE) [Suspect]
     Dosage: 4 U, QD
     Route: 048
     Dates: end: 20111222

REACTIONS (3)
  - NAUSEA [None]
  - WEIGHT INCREASED [None]
  - SWELLING FACE [None]
